FAERS Safety Report 25185796 (Version 2)
Quarter: 2025Q2

REPORT INFORMATION
  Report Type: Spontaneous
  Country: BR (occurrence: BR)
  Receive Date: 20250410
  Receipt Date: 20250429
  Transmission Date: 20250717
  Serious: Yes (Other)
  Sender: ELI LILLY AND COMPANY
  Company Number: BR-ELI_LILLY_AND_COMPANY-BR202504000722

PATIENT
  Age: 33 Year
  Sex: Female
  Weight: 138 kg

DRUGS (6)
  1. ABEMACICLIB [Suspect]
     Active Substance: ABEMACICLIB
     Indication: Breast cancer female
     Dosage: 50 MG, BID
     Route: 048
     Dates: start: 20250317
  2. ABEMACICLIB [Suspect]
     Active Substance: ABEMACICLIB
     Indication: Metastases to lymph nodes
     Dosage: 50 MG, BID
     Route: 048
     Dates: start: 20250321, end: 20250321
  3. TRIPTORELIN [Suspect]
     Active Substance: TRIPTORELIN
     Indication: Product used for unknown indication
     Route: 065
     Dates: start: 20250320
  4. ANASTROZOLE [Concomitant]
     Active Substance: ANASTROZOLE
     Indication: Breast cancer female
     Dosage: 1 MG, DAILY
     Route: 048
  5. ANASTROZOLE [Concomitant]
     Active Substance: ANASTROZOLE
     Indication: Metastases to lymph nodes
  6. LOSARTAN [Concomitant]
     Active Substance: LOSARTAN
     Indication: Hypertension
     Dosage: 50 MG, DAILY
     Route: 048

REACTIONS (10)
  - Dysphagia [Recovering/Resolving]
  - Hypoxia [Recovering/Resolving]
  - Malignant neoplasm progression [Recovering/Resolving]
  - Chills [Recovering/Resolving]
  - Cough [Recovering/Resolving]
  - Creatinine renal clearance increased [Recovering/Resolving]
  - Headache [Recovering/Resolving]
  - Vomiting [Recovering/Resolving]
  - Diarrhoea [Recovering/Resolving]
  - Aspartate aminotransferase increased [Recovering/Resolving]
